FAERS Safety Report 19639976 (Version 1)
Quarter: 2021Q3

REPORT INFORMATION
  Report Type: Spontaneous
  Country: US (occurrence: US)
  Receive Date: 20210730
  Receipt Date: 20210730
  Transmission Date: 20211014
  Serious: Yes (Hospitalization)
  Sender: FDA-Public Use
  Company Number: US-MYLANLABS-2021M1045931

PATIENT
  Age: 19 Year
  Sex: Female

DRUGS (18)
  1. OLANZAPINE. [Suspect]
     Active Substance: OLANZAPINE
     Indication: MANIA
     Dosage: 15 MILLIGRAM, ON DAY 10 OF HOSPITALISATION
     Route: 048
  2. LORAZEPAM. [Concomitant]
     Active Substance: LORAZEPAM
     Indication: PRODUCT USED FOR UNKNOWN INDICATION
     Dosage: 1 MILLIGRAM, EVERY 2 HOURS AS NEEDED
     Route: 048
  3. HALOPERIDOL. [Suspect]
     Active Substance: HALOPERIDOL
     Indication: MANIA
  4. QUETIAPINE. [Suspect]
     Active Substance: QUETIAPINE
     Indication: PSYCHOTIC DISORDER
     Dosage: UNK, INITIAL DOSE NOT STATED
     Route: 065
  5. HALOPERIDOL. [Suspect]
     Active Substance: HALOPERIDOL
     Indication: MANIA
  6. PIPERACILLIN/TAZOBACTAM [Concomitant]
     Active Substance: PIPERACILLIN SODIUM\TAZOBACTAM SODIUM
     Indication: EVIDENCE BASED TREATMENT
     Dosage: UNK
     Route: 065
  7. FLUCONAZOLE. [Concomitant]
     Active Substance: FLUCONAZOLE
     Indication: ORAL CANDIDIASIS
     Dosage: UNK
     Route: 065
  8. DIPHENHYDRAMINE. [Concomitant]
     Active Substance: DIPHENHYDRAMINE
     Indication: PRODUCT USED FOR UNKNOWN INDICATION
     Dosage: UNK
     Route: 065
  9. BENZTROPINE                        /00012901/ [Concomitant]
     Active Substance: BENZTROPINE
     Indication: PRODUCT USED FOR UNKNOWN INDICATION
     Dosage: 1 MILLIGRAM, BID
     Route: 065
  10. OLANZAPINE. [Suspect]
     Active Substance: OLANZAPINE
     Indication: AGITATION
     Dosage: 10 MILLIGRAM, ON DAY 11 OF HOSPITALISATION
     Route: 048
  11. HALOPERIDOL. [Suspect]
     Active Substance: HALOPERIDOL
     Indication: PSYCHOTIC DISORDER
     Dosage: INITIAL DOSE AND ROUTE NOT STATED
     Route: 065
  12. LITHIUM. [Concomitant]
     Active Substance: LITHIUM
     Indication: MANIA
     Dosage: 1200 MILLIGRAM, QD
     Route: 048
  13. OLANZAPINE. [Suspect]
     Active Substance: OLANZAPINE
     Indication: PSYCHOTIC DISORDER
     Dosage: 25 MILLIGRAM, QD, INITIAL DOSE UNKNOWN;...
     Route: 048
  14. PROPRANOLOL [Concomitant]
     Active Substance: PROPRANOLOL HYDROCHLORIDE
     Indication: TACHYCARDIA
     Dosage: 10 MILLIGRAM, BID
     Route: 065
  15. CLOTRIMAZOLE. [Concomitant]
     Active Substance: CLOTRIMAZOLE
     Indication: EVIDENCE BASED TREATMENT
     Dosage: 10 MILLIGRAM, TROCHES; 5 TIMES A DAY
     Route: 065
  16. DIAZEPAM. [Concomitant]
     Active Substance: DIAZEPAM
     Indication: PRODUCT USED FOR UNKNOWN INDICATION
     Dosage: UNK
     Route: 065
  17. HALOPERIDOL. [Suspect]
     Active Substance: HALOPERIDOL
     Indication: PSYCHOTIC DISORDER
     Dosage: 10 MILLIGRAM
     Route: 030
  18. QUETIAPINE. [Suspect]
     Active Substance: QUETIAPINE
     Indication: MANIA
     Dosage: 50 MILLIGRAM, BID
     Route: 065

REACTIONS (3)
  - Neuroleptic malignant syndrome [Recovering/Resolving]
  - Dysphagia [Recovering/Resolving]
  - Aspiration [Recovering/Resolving]
